FAERS Safety Report 24389346 (Version 2)
Quarter: 2025Q3

REPORT INFORMATION
  Report Type: Spontaneous
  Country: AU (occurrence: AU)
  Receive Date: 20241003
  Receipt Date: 20250803
  Transmission Date: 20251021
  Serious: Yes (Other)
  Sender: ALEXION PHARMACEUTICALS
  Company Number: AU-AstraZeneca-CH-00712204A

PATIENT
  Age: 60 Year
  Sex: Male

DRUGS (1)
  1. FASENRA [Suspect]
     Active Substance: BENRALIZUMAB
     Indication: Asthma
     Dosage: UNK UNK, Q8W
     Dates: start: 202309

REACTIONS (2)
  - Pancytopenia [Unknown]
  - Intra-abdominal haemorrhage [Unknown]

NARRATIVE: CASE EVENT DATE: 20240801
